FAERS Safety Report 15003912 (Version 1)
Quarter: 2018Q2

REPORT INFORMATION
  Report Type: Spontaneous
  Country: SE (occurrence: SE)
  Receive Date: 20180613
  Receipt Date: 20180613
  Transmission Date: 20180711
  Serious: Yes (Hospitalization)
  Sender: FDA-Public Use
  Company Number: SE-TEVA-2018-SE-906628

PATIENT
  Age: 85 Year
  Sex: Male

DRUGS (1)
  1. DOXYFERM 100 MG TABLETT [Suspect]
     Active Substance: DOXYCYCLINE
     Indication: COUGH
     Dosage: DOSAGE: ^2 TABL^
     Route: 048
     Dates: start: 20180302, end: 20180308

REACTIONS (3)
  - Tubulointerstitial nephritis [Not Recovered/Not Resolved]
  - Jaundice [Not Recovered/Not Resolved]
  - Urticaria [Not Recovered/Not Resolved]

NARRATIVE: CASE EVENT DATE: 20180309
